FAERS Safety Report 5635153-0 (Version None)
Quarter: 2008Q1

REPORT INFORMATION
  Report Type: 
  Country: None (occurrence: None)
  Receive Date: 20080131
  Receipt Date: 20071109
  Transmission Date: 20080703
  Serious: No
  Sender: FDA-Public Use
  Company Number: 163-21880-07110592

PATIENT
  Age: 58 Year
  Sex: Female

DRUGS (1)
  1. REVLIMID [Suspect]
     Indication: MULTIPLE MYELOMA
     Dosage: 15 MG, 1 IN 1 D, ORAL
     Route: 048
     Dates: start: 20071017, end: 20071021

REACTIONS (5)
  - AGGRESSION [None]
  - IRRITABILITY [None]
  - MENTAL STATUS CHANGES [None]
  - NERVOUSNESS [None]
  - WHITE BLOOD CELL COUNT DECREASED [None]
